FAERS Safety Report 18925314 (Version 1)
Quarter: 2021Q1

REPORT INFORMATION
  Report Type: Spontaneous
  Country: IT (occurrence: IT)
  Receive Date: 20210222
  Receipt Date: 20210222
  Transmission Date: 20210420
  Serious: Yes (Hospitalization, Other)
  Sender: FDA-Public Use
  Company Number: IT-GILEAD-2021-0518261

PATIENT
  Age: 55 Year
  Sex: Female
  Weight: 75 kg

DRUGS (2)
  1. YESCARTA [Suspect]
     Active Substance: AXICABTAGENE CILOLEUCEL
     Indication: DIFFUSE LARGE B-CELL LYMPHOMA RECURRENT
     Dosage: 1 DOSAGE FORM
     Route: 042
     Dates: start: 20210204, end: 20210204
  2. ROACTEMRA [Concomitant]
     Active Substance: TOCILIZUMAB
     Dosage: 1 DOSAGE FORM
     Route: 042
     Dates: start: 20210209, end: 20210209

REACTIONS (1)
  - Immune effector cell-associated neurotoxicity syndrome [Recovering/Resolving]

NARRATIVE: CASE EVENT DATE: 20210209
